FAERS Safety Report 22111820 (Version 1)
Quarter: 2023Q1

REPORT INFORMATION
  Report Type: Spontaneous
  Country: DK (occurrence: DK)
  Receive Date: 20230318
  Receipt Date: 20230318
  Transmission Date: 20230418
  Serious: Yes (Death, Life-Threatening, Hospitalization)
  Sender: FDA-Public Use
  Company Number: None

PATIENT
  Age: 76 Year
  Sex: Male
  Weight: 94 kg

DRUGS (5)
  1. ASPIRIN [Suspect]
     Active Substance: ASPIRIN
     Indication: Anticoagulant therapy
     Dosage: 75 MG, QD
     Route: 048
     Dates: start: 2011
  2. METOPROLOL SUCCINAT ACINO [Concomitant]
     Indication: Hypertension
     Dosage: UNK
     Route: 065
     Dates: start: 20140403
  3. BENDROFLUMETHIAZIDE\POTASSIUM CHLORIDE [Concomitant]
     Active Substance: BENDROFLUMETHIAZIDE\POTASSIUM CHLORIDE
     Indication: Hypertension
     Dosage: UNK (START DATE UNKNOWN, BUT AT LEAST SINCE MAY 2021)
     Route: 065
  4. SIMVASTATIN STADA [Concomitant]
     Indication: Hypercholesterolaemia
     Dosage: UNK (START DATE UNKNOWN, BUT AT LEAST SINCE MAY 2021)
     Route: 065
  5. METFORMIN HYDROCHLORIDE [Concomitant]
     Active Substance: METFORMIN HYDROCHLORIDE
     Indication: Type 2 diabetes mellitus
     Dosage: UNK
     Route: 065
     Dates: start: 20161006

REACTIONS (5)
  - Cerebral haemorrhage [Fatal]
  - Hemiparesis [Fatal]
  - Pupillary reflex impaired [Fatal]
  - Aphasia [Fatal]
  - Fall [Fatal]
